FAERS Safety Report 19237519 (Version 1)
Quarter: 2021Q2

REPORT INFORMATION
  Report Type: Spontaneous
  Country: US (occurrence: US)
  Receive Date: 20210510
  Receipt Date: 20210510
  Transmission Date: 20210717
  Serious: Yes (Other)
  Sender: FDA-Public Use
  Company Number: None

PATIENT
  Age: 77 Year
  Sex: Male
  Weight: 63 kg

DRUGS (12)
  1. STIOLTO RESPIMAT [Concomitant]
     Active Substance: OLODATEROL HYDROCHLORIDE\TIOTROPIUM BROMIDE MONOHYDRATE
  2. LATANOPROST. [Concomitant]
     Active Substance: LATANOPROST
  3. ASPIRIN. [Concomitant]
     Active Substance: ASPIRIN
  4. FLOVENT [Concomitant]
     Active Substance: FLUTICASONE PROPIONATE
  5. OXYGEN. [Concomitant]
     Active Substance: OXYGEN
  6. DORZOLAMIDE?TIMOLOL [Concomitant]
     Active Substance: DORZOLAMIDE\TIMOLOL
  7. ATORVASTATIN [Concomitant]
     Active Substance: ATORVASTATIN
  8. MOMETASONE [Concomitant]
     Active Substance: MOMETASONE
  9. ALBUTEROL HFA [Concomitant]
     Active Substance: ALBUTEROL SULFATE
  10. LEVOFLOXACIN. [Suspect]
     Active Substance: LEVOFLOXACIN
     Indication: INFECTION
     Dosage: ?          QUANTITY:1 TABLET(S);?
     Route: 048
     Dates: start: 20210501, end: 20210503
  11. IPRATROPLUM [Concomitant]
  12. TIMOLOL DILTIAZEM CD [Concomitant]

REACTIONS (2)
  - Tendon pain [None]
  - Tenderness [None]

NARRATIVE: CASE EVENT DATE: 20210501
